FAERS Safety Report 8209559-X (Version None)
Quarter: 2012Q1

REPORT INFORMATION
  Report Type: 
  Country: None (occurrence: None)
  Receive Date: 20120314
  Receipt Date: 20120306
  Transmission Date: 20120608
  Serious: Yes (Hospitalization, Other)
  Sender: FDA-Public Use
  Company Number: PHEH2012US003910

PATIENT
  Sex: Male
  Weight: 87.26 kg

DRUGS (2)
  1. CITALOPRAM [Concomitant]
     Indication: DEPRESSION
     Dosage: 40 MG DAILY
     Route: 048
  2. CLOZARIL [Suspect]
     Indication: SCHIZOPHRENIA
     Dosage: 200 MG DAILY
     Route: 048

REACTIONS (9)
  - SEPSIS [None]
  - AGRANULOCYTOSIS [None]
  - NEUTROPHIL COUNT DECREASED [None]
  - ASPARTATE AMINOTRANSFERASE INCREASED [None]
  - LOCALISED INFECTION [None]
  - ANAEMIA [None]
  - ALANINE AMINOTRANSFERASE INCREASED [None]
  - WHITE BLOOD CELL COUNT DECREASED [None]
  - NEUTROPENIA [None]
